FAERS Safety Report 13178624 (Version 1)
Quarter: 2017Q1

REPORT INFORMATION
  Report Type: Spontaneous
  Country: None (occurrence: US)
  Receive Date: 20170201
  Receipt Date: 20170201
  Transmission Date: 20170428
  Serious: No
  Sender: FDA-Public Use
  Company Number: None

PATIENT
  Age: 63 Year
  Sex: Female

DRUGS (1)
  1. RITUXIMAB, 100 MG [Suspect]
     Active Substance: RITUXIMAB
     Indication: B-CELL LYMPHOMA

REACTIONS (4)
  - Throat irritation [None]
  - Back pain [None]
  - Chills [None]
  - Arthralgia [None]
